FAERS Safety Report 10070018 (Version 1)
Quarter: 2014Q2

REPORT INFORMATION
  Report Type: Spontaneous
  Country: GB (occurrence: None)
  Receive Date: 20140408
  Receipt Date: 20140408
  Transmission Date: 20141212
  Serious: Yes (Hospitalization)
  Sender: FDA-Public Use
  Company Number: AUR-APL-2014-04006

PATIENT
  Age: 86 Year
  Sex: Female

DRUGS (10)
  1. FLUOXETINE [Suspect]
     Indication: PRODUCT USED FOR UNKNOWN INDICATION
     Route: 048
  2. WARFARIN [Suspect]
     Indication: PRODUCT USED FOR UNKNOWN INDICATION
     Route: 048
  3. DIGOXIN (DIGOXIN) [Concomitant]
  4. FUROSEMIDE (FUROSEMIDE) [Concomitant]
  5. GLYCERYL TRINITRATE (GLYCERYL TRINITRATE) [Concomitant]
  6. MORPHINE (MORPHINE) [Concomitant]
  7. ORAMORPH (MORPHINE SULFATE PENTAHYDRATE) [Concomitant]
  8. SENNA (SENNA ALEXANDRINA) [Concomitant]
  9. SIMVASTATIN (SIMVASTATIN) [Concomitant]
  10. SODIUM CHLORIDE [Concomitant]

REACTIONS (3)
  - Gastrointestinal haemorrhage [None]
  - Small intestinal obstruction [None]
  - Chest pain [None]
